FAERS Safety Report 9203737 (Version 2)
Quarter: 2013Q2

REPORT INFORMATION
  Report Type: Spontaneous
  Country: DE (occurrence: DE)
  Receive Date: 20130402
  Receipt Date: 20130412
  Transmission Date: 20140414
  Serious: Yes (Hospitalization, Other)
  Sender: FDA-Public Use
  Company Number: DE-JNJFOC-20130318401

PATIENT
  Age: 64 Year
  Sex: Male
  Weight: 80 kg

DRUGS (3)
  1. XARELTO [Suspect]
     Indication: DEEP VEIN THROMBOSIS
     Dosage: TOTAL 30MG
     Route: 048
     Dates: start: 20130311, end: 20130314
  2. JANUMET [Concomitant]
     Indication: DIABETES MELLITUS
     Route: 065
  3. RAMIPRIL [Concomitant]
     Indication: HYPERTENSION
     Route: 065

REACTIONS (2)
  - Nerve injury [Recovered/Resolved]
  - Haematoma [Recovered/Resolved]
